FAERS Safety Report 11940924 (Version 1)
Quarter: 2016Q1

REPORT INFORMATION
  Report Type: Report from Study
  Country: US (occurrence: US)
  Receive Date: 20160122
  Receipt Date: 20160122
  Transmission Date: 20160526
  Serious: Yes (Hospitalization, Other)
  Sender: FDA-Public Use
  Company Number: US-ABBVIE-16K-163-1542866-00

PATIENT
  Age: 34 Year
  Sex: Female

DRUGS (1)
  1. HUMIRA [Suspect]
     Active Substance: ADALIMUMAB
     Indication: CROHN^S DISEASE
     Route: 058
     Dates: start: 201404

REACTIONS (13)
  - Nausea [Recovered/Resolved]
  - Oral candidiasis [Not Recovered/Not Resolved]
  - Anaemia [Unknown]
  - Diarrhoea haemorrhagic [Recovered/Resolved]
  - Fatigue [Not Recovered/Not Resolved]
  - Drug specific antibody present [Not Recovered/Not Resolved]
  - Nausea [Recovered/Resolved]
  - Crohn^s disease [Recovering/Resolving]
  - Drug ineffective [Not Recovered/Not Resolved]
  - Stress [Not Recovered/Not Resolved]
  - Crohn^s disease [Recovered/Resolved]
  - Diarrhoea haemorrhagic [Recovered/Resolved]
  - Vomiting [Recovered/Resolved]

NARRATIVE: CASE EVENT DATE: 2015
